FAERS Safety Report 21521716 (Version 2)
Quarter: 2022Q4

REPORT INFORMATION
  Report Type: Spontaneous
  Country: AU (occurrence: AU)
  Receive Date: 20221028
  Receipt Date: 20221102
  Transmission Date: 20230113
  Serious: Yes (Other)
  Sender: FDA-Public Use
  Company Number: AU-GE HEALTHCARE-2022CSU007644

PATIENT
  Age: 44 Year
  Sex: Male
  Weight: 94 kg

DRUGS (3)
  1. OMNIPAQUE [Suspect]
     Active Substance: IOHEXOL
     Indication: Computerised tomogram abdomen
     Dosage: 80 ML AT 2.5 ML/SECOND, ONCE
     Route: 042
     Dates: start: 20221020, end: 20221020
  2. OMNIPAQUE [Suspect]
     Active Substance: IOHEXOL
     Indication: Abdominal pain lower
  3. OMNIPAQUE [Suspect]
     Active Substance: IOHEXOL
     Indication: Diverticulitis

REACTIONS (2)
  - Dysphagia [Recovered/Resolved]
  - Tremor [Recovered/Resolved]

NARRATIVE: CASE EVENT DATE: 20221020
